FAERS Safety Report 18358410 (Version 1)
Quarter: 2020Q4

REPORT INFORMATION
  Report Type: Spontaneous
  Country: US (occurrence: US)
  Receive Date: 20201008
  Receipt Date: 20201008
  Transmission Date: 20210114
  Serious: No
  Sender: FDA-Public Use
  Company Number: US-TERSERA THERAPEUTICS LLC-2020TRS002422

PATIENT

DRUGS (1)
  1. VARUBI [Suspect]
     Active Substance: ROLAPITANT
     Indication: UTERINE CANCER
     Dosage: 180 MG, (TAKE 2 TABLETS BY MOUTH 1-2 HOURS PRIOR TO CHEMO EVERY 3 WEEKS
     Route: 048
     Dates: start: 20200715

REACTIONS (6)
  - Hypoaesthesia [Not Recovered/Not Resolved]
  - Nausea [Not Recovered/Not Resolved]
  - Dehydration [Not Recovered/Not Resolved]
  - Vomiting [Not Recovered/Not Resolved]
  - Dry skin [Not Recovered/Not Resolved]
  - Fatigue [Not Recovered/Not Resolved]

NARRATIVE: CASE EVENT DATE: 20200819
